FAERS Safety Report 16093695 (Version 1)
Quarter: 2019Q1

REPORT INFORMATION
  Report Type: Spontaneous
  Country: IT (occurrence: IT)
  Receive Date: 20190320
  Receipt Date: 20190320
  Transmission Date: 20190418
  Serious: Yes (Hospitalization)
  Sender: FDA-Public Use
  Company Number: IT-AUROBINDO-AUR-APL-2019-014651

PATIENT

DRUGS (3)
  1. KETOROLAC [Suspect]
     Active Substance: KETOROLAC\KETOROLAC TROMETHAMINE
     Indication: BONE PAIN
     Dosage: 90 MILLIGRAM, ONCE A DAY
     Route: 042
     Dates: start: 20171129, end: 20171213
  2. ACETYLSALICYLIC ACID [Suspect]
     Active Substance: ASPIRIN
     Indication: HYPERTENSION
     Dosage: 100 MILLIGRAM, ONCE A DAY
     Route: 048
     Dates: start: 20171127, end: 20171228
  3. ENOXAPARIN SODIUM. [Suspect]
     Active Substance: ENOXAPARIN SODIUM
     Indication: CARDIAC VALVE PROSTHESIS USER
     Dosage: 12000 KILO-INTERNATIONAL UNIT, ONCE A DAY
     Route: 058
     Dates: start: 20171127, end: 20171228

REACTIONS (2)
  - Prothrombin time prolonged [Recovered/Resolved]
  - Drug interaction [Recovered/Resolved]

NARRATIVE: CASE EVENT DATE: 20171204
